FAERS Safety Report 7310500-2 (Version None)
Quarter: 2011Q1

REPORT INFORMATION
  Report Type: 
  Country: None (occurrence: None)
  Receive Date: 20110224
  Receipt Date: 20101102
  Transmission Date: 20110831
  Serious: No
  Sender: FDA-Public Use
  Company Number: US-BRISTOL-MYERS SQUIBB COMPANY-15363898

PATIENT
  Age: 50 Year
  Sex: Male

DRUGS (2)
  1. GLUCOPHAGE [Suspect]
     Dosage: 3 TABS PER DAY
  2. METFORMIN HCL [Suspect]

REACTIONS (3)
  - ABDOMINAL DISCOMFORT [None]
  - BLOOD GLUCOSE ABNORMAL [None]
  - MUSCLE SPASMS [None]
